FAERS Safety Report 8506304-5 (Version None)
Quarter: 2012Q3

REPORT INFORMATION
  Report Type: 
  Country: None (occurrence: None)
  Receive Date: 20120712
  Receipt Date: 20120703
  Transmission Date: 20120928
  Serious: Yes (Other)
  Sender: FDA-Public Use
  Company Number: US-ASTRAZENECA-2012SE28152

PATIENT
  Age: 53 Year
  Sex: Female

DRUGS (4)
  1. NEXIUM [Suspect]
     Route: 048
  2. LANSOPRAZOLE [Concomitant]
  3. PREVACID [Concomitant]
  4. NEXIUM [Suspect]
     Route: 048

REACTIONS (6)
  - OFF LABEL USE [None]
  - CONFUSIONAL STATE [None]
  - GASTROINTESTINAL HAEMORRHAGE [None]
  - HEADACHE [None]
  - FATIGUE [None]
  - ABDOMINAL PAIN UPPER [None]
